FAERS Safety Report 13263753 (Version 3)
Quarter: 2017Q1

REPORT INFORMATION
  Report Type: Spontaneous
  Country: US (occurrence: US)
  Receive Date: 20170223
  Receipt Date: 20170321
  Transmission Date: 20170428
  Serious: No
  Sender: FDA-Public Use
  Company Number: US-PFIZER INC-2017072249

PATIENT
  Age: 43 Year
  Sex: Female
  Weight: 66 kg

DRUGS (9)
  1. LYRICA [Suspect]
     Active Substance: PREGABALIN
     Dosage: 200 MG, 3X/DAY
     Route: 048
     Dates: start: 20170208
  2. LYRICA [Suspect]
     Active Substance: PREGABALIN
     Dosage: 150 MG, 2X/DAY
     Route: 048
     Dates: start: 2015
  3. TIZANIDINE. [Concomitant]
     Active Substance: TIZANIDINE
     Indication: SPINAL DISORDER
     Dosage: 4 MG, 2X/DAY
  4. OXYCODONE [Concomitant]
     Active Substance: OXYCODONE
     Indication: SPINAL DISORDER
  5. OXYCODONE [Concomitant]
     Active Substance: OXYCODONE
     Indication: BACK PAIN
     Dosage: 50 MG, UNK
  6. OXYCODONE [Concomitant]
     Active Substance: OXYCODONE
     Indication: COMPRESSION FRACTURE
  7. LYRICA [Suspect]
     Active Substance: PREGABALIN
     Indication: NEURALGIA
     Dosage: 200 MG, 3X/DAY
     Route: 048
  8. OXYCODONE [Concomitant]
     Active Substance: OXYCODONE
     Indication: NECK PAIN
     Dosage: 15 MG, AS NEEDED (EVERY 6 HR )
     Dates: start: 20161013
  9. ZANAFLEX [Concomitant]
     Active Substance: TIZANIDINE HYDROCHLORIDE
     Indication: MUSCLE SPASMS
     Dosage: 4 MG, AS NEEDED (BID)
     Dates: start: 20161013

REACTIONS (5)
  - Nausea [Unknown]
  - Cold sweat [Unknown]
  - Withdrawal syndrome [Unknown]
  - Hypertension [Not Recovered/Not Resolved]
  - Headache [Unknown]

NARRATIVE: CASE EVENT DATE: 201701
